FAERS Safety Report 5847836-8 (Version None)
Quarter: 2008Q3

REPORT INFORMATION
  Report Type: 
  Country: None (occurrence: None)
  Receive Date: 20080814
  Receipt Date: 20080814
  Transmission Date: 20090109
  Serious: No
  Sender: FDA-Public Use
  Company Number: None

PATIENT
  Age: 25 Year
  Sex: Female
  Weight: 68.9467 kg

DRUGS (1)
  1. RAPTIVA [Suspect]
     Dosage: 1 DAILY PO
     Route: 048

REACTIONS (2)
  - DIARRHOEA [None]
  - VOMITING [None]
